FAERS Safety Report 9312091 (Version 3)
Quarter: 2022Q1

REPORT INFORMATION
  Report Type: Spontaneous
  Country: FI (occurrence: FI)
  Receive Date: 20130528
  Receipt Date: 20220106
  Transmission Date: 20220423
  Serious: Yes (Hospitalization)
  Sender: FDA-Public Use
  Company Number: FI-BAXTER-2013BAX018942

PATIENT
  Age: 67 Year
  Sex: Female

DRUGS (22)
  1. CYCLOPHOSPHAMIDE [Suspect]
     Active Substance: CYCLOPHOSPHAMIDE
     Indication: Hodgkin^s disease
     Dosage: 1.36,G,CYCLICAL
     Dates: start: 20121214, end: 20130308
  2. CYCLOPHOSPHAMIDE [Suspect]
     Active Substance: CYCLOPHOSPHAMIDE
     Dates: start: 20121018, end: 20121126
  3. CYCLOPHOSPHAMIDE [Suspect]
     Active Substance: CYCLOPHOSPHAMIDE
     Dates: start: 20121018, end: 20130308
  4. CYCLOPHOSPHAMIDE [Suspect]
     Active Substance: CYCLOPHOSPHAMIDE
     Dates: start: 20121018, end: 20121126
  5. CYCLOPHOSPHAMIDE [Suspect]
     Active Substance: CYCLOPHOSPHAMIDE
     Dates: start: 20121018, end: 20121126
  6. CYCLOPHOSPHAMIDE [Suspect]
     Active Substance: CYCLOPHOSPHAMIDE
     Dates: start: 20121214, end: 20130308
  7. CYCLOPHOSPHAMIDE [Suspect]
     Active Substance: CYCLOPHOSPHAMIDE
     Dates: start: 20121214
  8. BLEOMYCIN SULFATE [Suspect]
     Active Substance: BLEOMYCIN SULFATE
     Indication: Hodgkin^s disease
     Dosage: 18, MG, CYCLICAL
     Dates: start: 20121018, end: 20121126
  9. PREDNISONE [Suspect]
     Active Substance: PREDNISONE
     Indication: Hodgkin^s disease
     Dates: start: 20121214, end: 20130308
  10. ADRIAMYCIN [Suspect]
     Active Substance: DOXORUBICIN HYDROCHLORIDE
     Indication: Hodgkin^s disease
     Dosage: 45-90 MG?,,CYCLICAL
     Dates: start: 20121018, end: 20130308
  11. VINBLASTINE SULFATE [Suspect]
     Active Substance: VINBLASTINE SULFATE
     Indication: Hodgkin^s disease
     Dosage: 11,MG,CYCLICAL
     Dates: start: 20121018, end: 20121126
  12. ONCOVIN [Suspect]
     Active Substance: VINCRISTINE SULFATE
     Indication: Hodgkin^s disease
     Dosage: 2,MG,CYCLICAL
     Dates: start: 20121214, end: 20130308
  13. DACARBAZINE CITRATE [Suspect]
     Active Substance: DACARBAZINE CITRATE
     Indication: Hodgkin^s disease
     Dosage: 680,MG,CYCLICAL
     Dates: start: 20121018, end: 20121126
  14. LEVOTHYROXINE [Concomitant]
     Active Substance: LEVOTHYROXINE
     Indication: Thyroxine decreased
  15. LEVOTHYROXINE [Concomitant]
     Active Substance: LEVOTHYROXINE
     Indication: Hypothyroidism
  16. ENOXAPARIN [Concomitant]
     Active Substance: ENOXAPARIN
     Indication: Anticoagulant therapy
     Dosage: 40,MG,DAILY
  17. ENOXAPARIN [Concomitant]
     Active Substance: ENOXAPARIN
     Indication: Thrombosis prophylaxis
  18. FILGRASTIM [Concomitant]
     Active Substance: FILGRASTIM
     Indication: Colony stimulating factor therapy
     Dates: start: 20121214, end: 20130315
  19. FILGRASTIM [Concomitant]
     Active Substance: FILGRASTIM
     Indication: Leukopenia
  20. PANTOPRAZOLE SODIUM [Concomitant]
     Active Substance: PANTOPRAZOLE SODIUM
     Indication: Prophylaxis against gastrointestinal ulcer
     Dosage: 20,MG,DAILY
     Dates: start: 20121018
  21. PANTOPRAZOLE SODIUM [Concomitant]
     Active Substance: PANTOPRAZOLE SODIUM
     Indication: Gastrooesophageal reflux disease
  22. BISOPROLOL [Concomitant]
     Active Substance: BISOPROLOL
     Indication: Hypertension
     Dosage: 5,MG,DAILY

REACTIONS (7)
  - Gait disturbance [None]
  - Asthenia [None]
  - Peripheral sensory neuropathy [None]
  - Radiculopathy [None]
  - Guillain-Barre syndrome [None]
  - Epstein-Barr viraemia [None]
  - Neutropenia [None]

NARRATIVE: CASE EVENT DATE: 20130411
